FAERS Safety Report 8673512 (Version 2)
Quarter: 2012Q4

REPORT INFORMATION
  Report Type: 
  Country: US (occurrence: US)
  Receive Date: 20120719
  Receipt Date: 20121019
  Transmission Date: 20130627
  Serious: Yes (Hospitalization, Other)
  Sender: FDA-Public Use
  Company Number: US-BRISTOL-MYERS SQUIBB COMPANY-16520579

PATIENT
  Age: 64 Year
  Sex: Female

DRUGS (2)
  1. YERVOY [Suspect]
     Indication: METASTATIC MALIGNANT MELANOMA
     Dosage: received 3 doses,Intd on 01Dec11,resd on 26Jul12
     Route: 042
     Dates: start: 20110927
  2. INTERFERON ALFA-2B [Suspect]
     Indication: METASTATIC MALIGNANT MELANOMA
     Dates: start: 20080505, end: 20080605

REACTIONS (1)
  - Hypophysitis [Recovered/Resolved]
